FAERS Safety Report 8120202-0 (Version None)
Quarter: 2012Q1

REPORT INFORMATION
  Report Type: 
  Country: None (occurrence: None)
  Receive Date: 20120207
  Receipt Date: 20120203
  Transmission Date: 20120608
  Serious: Yes (Other)
  Sender: FDA-Public Use
  Company Number: CA-TEVA-321094USA

PATIENT
  Sex: Male

DRUGS (9)
  1. METHOTREXATE [Suspect]
     Dosage: 3.5714 MILLIGRAM;
  2. COD LIVER OIL [Concomitant]
  3. INVESTIGATIONAL DRUG (ORENCIA-ABATACEPT) [Suspect]
     Indication: RHEUMATOID ARTHRITIS
     Dosage: 26.7857 MILLIGRAM;
     Route: 042
     Dates: start: 20090710
  4. LISINOPRIL [Concomitant]
  5. ATORVASTATIN CALCIUM [Concomitant]
  6. CITALOPRAM HYDROBROMIDE [Concomitant]
  7. ACETYLSALICYLIC ACID SRT [Concomitant]
  8. FOLIC ACID [Concomitant]
  9. VITALUX                            /01586901/ [Concomitant]

REACTIONS (2)
  - SQUAMOUS CELL CARCINOMA [None]
  - BASAL CELL CARCINOMA [None]
